FAERS Safety Report 7281743-1 (Version None)
Quarter: 2011Q1

REPORT INFORMATION
  Report Type: 
  Country: None (occurrence: None)
  Receive Date: 20110208
  Receipt Date: 20100201
  Transmission Date: 20110831
  Serious: No
  Sender: FDA-Public Use
  Company Number: US-PFIZER INC-2009281978

PATIENT
  Sex: Male
  Weight: 70.3 kg

DRUGS (2)
  1. SUTENT [Suspect]
     Indication: RENAL CELL CARCINOMA
     Dosage: 50 MG, 1X/DAY
     Route: 048
     Dates: start: 20090820
  2. LOPERAMIDE [Concomitant]

REACTIONS (3)
  - GAIT DISTURBANCE [None]
  - BLOOD SODIUM DECREASED [None]
  - INCORRECT DRUG ADMINISTRATION DURATION [None]
